FAERS Safety Report 5327600-9 (Version None)
Quarter: 2007Q2

REPORT INFORMATION
  Report Type: 
  Country: None (occurrence: None)
  Receive Date: 20070517
  Receipt Date: 20061016
  Transmission Date: 20071010
  Serious: Yes (Hospitalization, Other)
  Sender: FDA-Public Use
  Company Number: US-JNJFOC-20061004234

PATIENT
  Age: 44 Year
  Sex: Female

DRUGS (13)
  1. TRAMADOL HCL [Suspect]
     Indication: DRUG USE FOR UNKNOWN INDICATION
  2. SULFONYLUREA [Suspect]
     Indication: DRUG USE FOR UNKNOWN INDICATION
  3. THIAZOLIDINEDIONE [Suspect]
     Indication: DRUG USE FOR UNKNOWN INDICATION
  4. ANGIOTENSIN RECEPTOR BLOCKER [Suspect]
     Indication: DRUG USE FOR UNKNOWN INDICATION
  5. ATENOLOL [Suspect]
     Indication: DRUG USE FOR UNKNOWN INDICATION
  6. DIURETIC [Suspect]
     Indication: DRUG USE FOR UNKNOWN INDICATION
  7. POTASSIUM ACETATE [Suspect]
     Indication: DRUG USE FOR UNKNOWN INDICATION
  8. ACETAMINOPHEN AND HYDROCODONE BITARTRATE [Suspect]
     Indication: DRUG USE FOR UNKNOWN INDICATION
  9. ANTICONVULSANT [Concomitant]
  10. PROTON PUMP INHIBITOR [Concomitant]
  11. TRAZODONE HCL [Concomitant]
  12. BETA BLOCKER [Concomitant]
  13. NON-STEROIDAL ANTI-INFLAMMATORY DRUG [Concomitant]

REACTIONS (2)
  - HYPOGLYCAEMIA [None]
  - MULTIPLE DRUG OVERDOSE [None]
